FAERS Safety Report 12485696 (Version 2)
Quarter: 2016Q2

REPORT INFORMATION
  Report Type: Spontaneous
  Country: DE (occurrence: DE)
  Receive Date: 20160621
  Receipt Date: 20160629
  Transmission Date: 20160815
  Serious: Yes (Hospitalization)
  Sender: FDA-Public Use
  Company Number: DE-JNJFOC-20160614736

PATIENT
  Age: 32 Year
  Sex: Male

DRUGS (2)
  1. XEPLION [Suspect]
     Active Substance: PALIPERIDONE PALMITATE
     Indication: SCHIZOAFFECTIVE DISORDER
     Route: 030
     Dates: start: 20160517
  2. XEPLION [Suspect]
     Active Substance: PALIPERIDONE PALMITATE
     Indication: SCHIZOAFFECTIVE DISORDER
     Route: 030

REACTIONS (8)
  - Overdose [Unknown]
  - Sinus tachycardia [Unknown]
  - Vascular injury [Unknown]
  - Skin tightness [Unknown]
  - Aphasia [Unknown]
  - Extrapyramidal disorder [Unknown]
  - Dyspnoea [Unknown]
  - Fatigue [Unknown]
